FAERS Safety Report 25247073 (Version 1)
Quarter: 2025Q2

REPORT INFORMATION
  Report Type: Spontaneous
  Country: US (occurrence: US)
  Receive Date: 20250428
  Receipt Date: 20250428
  Transmission Date: 20250716
  Serious: No
  Sender: LEXICON PHARMACEUTICALS
  Company Number: US-LEX-000723

PATIENT
  Age: 81 Year
  Sex: Female

DRUGS (12)
  1. INPEFA [Suspect]
     Active Substance: SOTAGLIFLOZIN
     Indication: Product used for unknown indication
     Route: 048
     Dates: start: 20250307
  2. TRAMADOL [Concomitant]
     Active Substance: TRAMADOL
  3. SPIRONOLACTONE [Concomitant]
     Active Substance: SPIRONOLACTONE
  4. METOPROLOL SUCCINATE [Concomitant]
     Active Substance: METOPROLOL SUCCINATE
  5. LOSARTAN [Concomitant]
     Active Substance: LOSARTAN
  6. LEVOTHYROXINE [Concomitant]
     Active Substance: LEVOTHYROXINE
  7. HYDROXYCHLOROQUINE [Concomitant]
     Active Substance: HYDROXYCHLOROQUINE
  8. EZETIMIBE [Concomitant]
     Active Substance: EZETIMIBE
  9. ESZOPICLONE [Concomitant]
     Active Substance: ESZOPICLONE
  10. ATORVASTATIN [Concomitant]
     Active Substance: ATORVASTATIN
  11. APIXABAN [Concomitant]
     Active Substance: APIXABAN
  12. AMIODARONE [Concomitant]
     Active Substance: AMIODARONE

REACTIONS (5)
  - Pruritus [Unknown]
  - Diarrhoea [Unknown]
  - Balance disorder [Unknown]
  - Dizziness [Unknown]
  - Drug titration error [Unknown]

NARRATIVE: CASE EVENT DATE: 20250307
